FAERS Safety Report 14663998 (Version 2)
Quarter: 2018Q1

REPORT INFORMATION
  Report Type: Spontaneous
  Country: BR (occurrence: BR)
  Receive Date: 20180321
  Receipt Date: 20180329
  Transmission Date: 20180509
  Serious: No
  Sender: FDA-Public Use
  Company Number: BR-AMGEN-BRASP2018037874

PATIENT
  Age: 68 Year
  Sex: Female

DRUGS (1)
  1. ENBREL [Suspect]
     Active Substance: ETANERCEPT
     Indication: PRODUCT USED FOR UNKNOWN INDICATION
     Dosage: EVERY 15 DAYS
     Route: 065
     Dates: start: 20180123

REACTIONS (5)
  - Feeling hot [Unknown]
  - Drug ineffective [Unknown]
  - Cardiac disorder [Unknown]
  - Nodule [Unknown]
  - Bone pain [Unknown]
